FAERS Safety Report 6335337-2 (Version None)
Quarter: 2009Q3

REPORT INFORMATION
  Report Type: 
  Country: None (occurrence: None)
  Receive Date: 20090831
  Receipt Date: 20090818
  Transmission Date: 20100115
  Serious: Yes (Hospitalization, Other)
  Sender: FDA-Public Use
  Company Number: US-ELI_LILLY_AND_COMPANY-US200908005213

PATIENT
  Sex: Male

DRUGS (2)
  1. STRATTERA [Suspect]
     Dosage: 80 MG, UNKNOWN
     Route: 065
     Dates: start: 20090301
  2. CYMBALTA [Suspect]
     Indication: MAJOR DEPRESSION
     Dosage: 60 MG, UNKNOWN
     Route: 065
     Dates: start: 20070101

REACTIONS (3)
  - ABDOMINAL PAIN [None]
  - ABSCESS [None]
  - DIVERTICULITIS [None]
